FAERS Safety Report 8450681-0 (Version None)
Quarter: 2012Q2

REPORT INFORMATION
  Report Type: 
  Country: None (occurrence: None)
  Receive Date: 20120620
  Receipt Date: 20120613
  Transmission Date: 20120825
  Serious: Yes (Hospitalization, Other)
  Sender: FDA-Public Use
  Company Number: US-BAYER-2011-118939

PATIENT
  Age: 47 Year
  Sex: Female
  Weight: 98.866 kg

DRUGS (25)
  1. MOBIC [Concomitant]
     Indication: PAIN
     Dosage: 15 MG, QD
     Route: 048
  2. LORATADINE [Concomitant]
     Indication: HYPERSENSITIVITY
     Dosage: 10 MG, UNK
     Route: 048
  3. YASMIN [Suspect]
     Dosage: UNK
     Route: 048
     Dates: start: 20030201, end: 20091001
  4. SUPERIOR C [Concomitant]
     Indication: HYPOVITAMINOSIS
     Dosage: 1 G, QD
  5. DARVOCET-N 50 [Concomitant]
  6. DROSPIRENONE AND ETHINYL ESTRADIOL [Suspect]
     Dosage: UNK
     Route: 048
     Dates: start: 20030201, end: 20091001
  7. NEXIUM [Concomitant]
     Indication: GASTROOESOPHAGEAL REFLUX DISEASE
  8. LIDOCAINE [Concomitant]
     Indication: PAIN
     Dosage: 5 %, UNK
     Route: 062
  9. MAXZIDE [Concomitant]
     Dosage: 0.5 MG, UNK
     Route: 048
  10. YAZ [Suspect]
     Dosage: UNK
     Dates: start: 20030201, end: 20091001
  11. SYNTHROID [Concomitant]
     Indication: HYPOTHYROIDISM
     Dosage: 0.15 MG, UNK
  12. SOMA [Concomitant]
     Indication: MUSCLE SPASMS
     Dosage: 350 MG, UNK
     Route: 048
  13. SPIRONOLACTONE [Concomitant]
  14. CYTOMEL [Concomitant]
     Indication: HYPOTHYROIDISM
     Dosage: 5 ?G, UNK
     Route: 048
  15. AMOXICILLIN [Concomitant]
     Indication: ACNE
  16. HOMOCYSTEINE FORMULA [Concomitant]
     Indication: HYPOVITAMINOSIS
     Dosage: 1 G, UNK
  17. RELPAX [Concomitant]
     Indication: MIGRAINE
  18. POTASSIUM ACETATE [Concomitant]
     Indication: BLOOD POTASSIUM DECREASED
     Dosage: 10 MEQ, UNK
     Route: 048
  19. MAGNESIUM MALATE [Concomitant]
     Indication: HYPOVITAMINOSIS
  20. RANITIDINE [Concomitant]
     Indication: GASTROOESOPHAGEAL REFLUX DISEASE
     Dosage: 2 G, UNK
  21. VITAMIN D [Concomitant]
     Indication: HYPOVITAMINOSIS
     Dosage: 2 G, QD
  22. OMEPRAZOLE [Concomitant]
     Route: 048
  23. PRAVASTATIN [Concomitant]
     Indication: HYPERCHOLESTEROLAEMIA
  24. SUDAFED 12 HOUR [Concomitant]
     Indication: HYPERSENSITIVITY
  25. MAXZIDE [Concomitant]
     Indication: MENIERE'S DISEASE

REACTIONS (4)
  - PULMONARY EMBOLISM [None]
  - GALLBLADDER DISORDER [None]
  - PAIN [None]
  - DEEP VEIN THROMBOSIS [None]
